FAERS Safety Report 16856340 (Version 1)
Quarter: 2019Q3

REPORT INFORMATION
  Report Type: Spontaneous
  Country: US (occurrence: US)
  Receive Date: 20190926
  Receipt Date: 20190926
  Transmission Date: 20191005
  Serious: No
  Sender: FDA-Public Use
  Company Number: US-PFIZER INC-2019413507

PATIENT
  Age: 28 Year
  Sex: Female

DRUGS (1)
  1. INDERAL [Suspect]
     Active Substance: PROPRANOLOL HYDROCHLORIDE
     Dosage: 80 MG, UNK

REACTIONS (7)
  - Paraesthesia [Unknown]
  - Dizziness [Unknown]
  - Product dose omission [Unknown]
  - Heart rate increased [Unknown]
  - Dyspnoea [Unknown]
  - Tremor [Unknown]
  - Hypoaesthesia [Unknown]

NARRATIVE: CASE EVENT DATE: 20190828
